FAERS Safety Report 6282336-5 (Version None)
Quarter: 2009Q3

REPORT INFORMATION
  Report Type: 
  Country: None (occurrence: None)
  Receive Date: 20090722
  Receipt Date: 20090722
  Transmission Date: 20100115
  Serious: Yes (Other)
  Sender: FDA-Public Use
  Company Number: None

PATIENT
  Age: 21 Year
  Sex: Female
  Weight: 50.8029 kg

DRUGS (1)
  1. YAZ [Suspect]
     Indication: CONTRACEPTION
     Dosage: 1 PILL PER DAY 1 PER DAY PO
     Route: 048
     Dates: start: 20081227, end: 20090402

REACTIONS (4)
  - ANXIETY [None]
  - DEPRESSION [None]
  - MALAISE [None]
  - NERVOUSNESS [None]
